FAERS Safety Report 10889803 (Version 2)
Quarter: 2015Q1

REPORT INFORMATION
  Report Type: Spontaneous
  Country: JP (occurrence: JP)
  Receive Date: 20150305
  Receipt Date: 20150326
  Transmission Date: 20150721
  Serious: Yes (Hospitalization, Other)
  Sender: FDA-Public Use
  Company Number: JP-PFIZER INC-2015065441

PATIENT
  Age: 77 Year
  Sex: Male

DRUGS (2)
  1. SUTENT [Suspect]
     Active Substance: SUNITINIB MALATE
     Dosage: 37.5 MG, CYCLIC ONCE DAILY
     Dates: start: 20130812, end: 20150218
  2. SUTENT [Suspect]
     Active Substance: SUNITINIB MALATE
     Indication: METASTATIC RENAL CELL CARCINOMA
     Dosage: 50 MG, 1X/DAY
     Route: 048
     Dates: start: 20130722, end: 20130805

REACTIONS (10)
  - Pulmonary infarction [Recovered/Resolved]
  - Venous thrombosis limb [Recovered/Resolved]
  - Pyrexia [Recovered/Resolved]
  - Hypothyroidism [Not Recovered/Not Resolved]
  - Lung abscess [Unknown]
  - Dysgeusia [Not Recovered/Not Resolved]
  - Femur fracture [Unknown]
  - Cardiac failure [Unknown]
  - Oedema [Not Recovered/Not Resolved]
  - Platelet count decreased [Recovered/Resolved]

NARRATIVE: CASE EVENT DATE: 20130802
